FAERS Safety Report 7876456-9 (Version None)
Quarter: 2011Q4

REPORT INFORMATION
  Report Type: 
  Country: None (occurrence: None)
  Receive Date: 20111031
  Receipt Date: 20111021
  Transmission Date: 20120403
  Serious: Yes (Other)
  Sender: FDA-Public Use
  Company Number: US-AMGEN-USASP2011054703

PATIENT
  Sex: Female

DRUGS (1)
  1. ENBREL [Suspect]
     Indication: RHEUMATOID ARTHRITIS
     Dosage: 50 MG, QWK
     Dates: start: 20090101

REACTIONS (13)
  - DYSPNOEA EXERTIONAL [None]
  - HYPERHIDROSIS [None]
  - ARTHRALGIA [None]
  - VITREOUS FLOATERS [None]
  - PAIN IN EXTREMITY [None]
  - LUNG NEOPLASM [None]
  - MOBILITY DECREASED [None]
  - WEIGHT BEARING DIFFICULTY [None]
  - PHOTOPSIA [None]
  - DYSKINESIA [None]
  - WEIGHT INCREASED [None]
  - BALANCE DISORDER [None]
  - MUSCULOSKELETAL STIFFNESS [None]
